FAERS Safety Report 25070905 (Version 3)
Quarter: 2025Q2

REPORT INFORMATION
  Report Type: Report from Study
  Country: MX (occurrence: MX)
  Receive Date: 20250312
  Receipt Date: 20250404
  Transmission Date: 20250716
  Serious: Yes (Death, Life-Threatening, Hospitalization, Other)
  Sender: NOVARTIS
  Company Number: MX-002147023-NVSC2025MX041230

PATIENT
  Age: 55 Year
  Sex: Male
  Weight: 75 kg

DRUGS (14)
  1. TASIGNA [Suspect]
     Active Substance: NILOTINIB
     Indication: Chronic myeloid leukaemia
     Dosage: 3 DOSAGE FORM (200MG), QD
     Route: 065
     Dates: start: 20240123, end: 20240924
  2. TASIGNA [Suspect]
     Active Substance: NILOTINIB
     Dosage: 2 DOSAGE FORM (200MG), Q12H
     Route: 048
     Dates: start: 20240924
  3. PRAZOSIN [Concomitant]
     Active Substance: PRAZOSIN
     Indication: Product used for unknown indication
     Dosage: 4 OF 1 MG, Q6H (TABLET)
     Route: 065
  4. NIFEDIPINE [Concomitant]
     Active Substance: NIFEDIPINE
     Indication: Product used for unknown indication
     Dosage: 2 OF 30 MG, Q8H (TABLET)
     Route: 065
  5. NILOTINIB [Concomitant]
     Active Substance: NILOTINIB
     Indication: Product used for unknown indication
     Dosage: 2 OF 200 MG, Q12H (CAPSULE)
     Route: 065
  6. VALSARTAN [Concomitant]
     Active Substance: VALSARTAN
     Indication: Product used for unknown indication
     Dosage: 2 OF 80 MG, Q12H (TABLET)
     Route: 065
  7. CHLORTHALIDONE [Concomitant]
     Active Substance: CHLORTHALIDONE
     Indication: Product used for unknown indication
     Dosage: 1 OF 50 MG, Q12H
     Route: 065
  8. CARVEDILOL [Concomitant]
     Active Substance: CARVEDILOL
     Indication: Product used for unknown indication
     Dosage: 1 OF 25 MG, Q12H (TABLET)
     Route: 065
  9. SPIRONOLACTONE [Concomitant]
     Active Substance: SPIRONOLACTONE
     Indication: Product used for unknown indication
     Dosage: 4 OF 25 MG, Q24H (TABLET)
     Route: 065
  10. ALLOPURINOL [Concomitant]
     Active Substance: ALLOPURINOL
     Indication: Product used for unknown indication
     Dosage: 1 OF 300  MG, Q24H (TABLET)
     Route: 065
  11. ATORVASTATIN [Concomitant]
     Active Substance: ATORVASTATIN
     Indication: Product used for unknown indication
     Dosage: 4 OF 20 MG, Q24H (TABLET)
     Route: 065
  12. DAPAGLIFLOZIN [Concomitant]
     Active Substance: DAPAGLIFLOZIN
     Indication: Product used for unknown indication
     Dosage: 2 OF 10 MG , Q24H
     Route: 065
  13. LINAGLIPTIN [Concomitant]
     Active Substance: LINAGLIPTIN
     Indication: Product used for unknown indication
     Dosage: 1 OF 5 MG, Q24H (TABLET)
     Route: 065
  14. SERTRALINE [Concomitant]
     Active Substance: SERTRALINE HYDROCHLORIDE
     Indication: Product used for unknown indication
     Dosage: 1 OF 50 MG, Q24H
     Route: 065

REACTIONS (19)
  - Death [Fatal]
  - Hypertensive crisis [Unknown]
  - Infarction [Unknown]
  - Eating disorder [Unknown]
  - Renal failure [Unknown]
  - Fluid retention [Unknown]
  - Metabolic acidosis [Unknown]
  - Septic shock [Unknown]
  - Cardiogenic shock [Unknown]
  - Acute myocardial infarction [Unknown]
  - Cardiac disorder [Unknown]
  - Renal disorder [Unknown]
  - Cataract [Unknown]
  - Diabetes mellitus [Unknown]
  - Eye infarction [Unknown]
  - Blindness [Unknown]
  - Drug ineffective [Unknown]
  - Hypertension [Unknown]
  - Off label use [Unknown]

NARRATIVE: CASE EVENT DATE: 20240924
